FAERS Safety Report 10079641 (Version 1)
Quarter: 2014Q2

REPORT INFORMATION
  Report Type: Spontaneous
  Country: US (occurrence: US)
  Receive Date: 20140415
  Receipt Date: 20140415
  Transmission Date: 20141212
  Serious: No
  Sender: FDA-Public Use
  Company Number: US-BAUSCH-BL-2014-001180

PATIENT
  Sex: Female

DRUGS (2)
  1. LOTEMAX (LOTEPREDNOL ETABONATE OPHTHALMIC GEL 0.5%) [Suspect]
     Indication: INFLAMMATION
     Dosage: 2 DROPS TWICE A DAY
     Route: 047
     Dates: start: 20140207, end: 20140213
  2. SYSTANE [Concomitant]
     Indication: DRY EYE
     Route: 047

REACTIONS (2)
  - Foreign body sensation in eyes [Unknown]
  - Deposit eye [Unknown]
